FAERS Safety Report 4356914-4 (Version None)
Quarter: 2004Q2

REPORT INFORMATION
  Report Type: 
  Country: None (occurrence: None)
  Receive Date: 20040507
  Receipt Date: 20040422
  Transmission Date: 20050107
  Serious: Yes (Hospitalization)
  Sender: FDA-Public Use
  Company Number: 2003-06061

PATIENT
  Age: 46 Year
  Sex: Male
  Weight: 81 kg

DRUGS (5)
  1. VIREAD [Suspect]
     Indication: HIV INFECTION
     Dosage: 300 MG, 1 IN 1 D, ORAL
     Route: 048
     Dates: start: 20030228, end: 20030327
  2. DIDANOSINE (DIDANOSINE) [Concomitant]
  3. EFAVIRENZ (EFAVIRENZ) [Concomitant]
  4. ENALAPRIL MALEATE [Concomitant]
  5. PRAVASTATIN [Concomitant]

REACTIONS (21)
  - ALANINE AMINOTRANSFERASE INCREASED [None]
  - ANGIONEUROTIC OEDEMA [None]
  - ASPARTATE AMINOTRANSFERASE INCREASED [None]
  - BLOOD GLUCOSE INCREASED [None]
  - BLOOD LACTATE DEHYDROGENASE INCREASED [None]
  - BLOOD SODIUM DECREASED [None]
  - FACE OEDEMA [None]
  - GLYCOSURIA [None]
  - HIV INFECTION CDC CATEGORY A1 [None]
  - HYPERSENSITIVITY [None]
  - HYPOAESTHESIA [None]
  - HYPOAESTHESIA ORAL [None]
  - INFLAMMATION [None]
  - LEUKOCYTURIA [None]
  - NAUSEA [None]
  - NEPHROPATHY TOXIC [None]
  - PRODUCTIVE COUGH [None]
  - RENAL FAILURE ACUTE [None]
  - RHINITIS [None]
  - URINARY CASTS [None]
  - VOMITING [None]
